FAERS Safety Report 5442365-8 (Version None)
Quarter: 2007Q3

REPORT INFORMATION
  Report Type: 
  Country: None (occurrence: None)
  Receive Date: 20070904
  Receipt Date: 20070823
  Transmission Date: 20080115
  Serious: Yes (Hospitalization)
  Sender: FDA-Public Use
  Company Number: FR-PFIZER INC-2007051555

PATIENT
  Sex: Male

DRUGS (1)
  1. VIRACEPT [Suspect]
     Indication: HIV INFECTION
     Route: 048

REACTIONS (3)
  - ABDOMINAL PAIN UPPER [None]
  - DIARRHOEA [None]
  - NAUSEA [None]
